FAERS Safety Report 17198765 (Version 1)
Quarter: 2019Q4

REPORT INFORMATION
  Report Type: Spontaneous
  Country: CO (occurrence: CO)
  Receive Date: 20191225
  Receipt Date: 20191225
  Transmission Date: 20200122
  Serious: Yes (Other)
  Sender: FDA-Public Use
  Company Number: CO-BRISTOL-MYERS SQUIBB COMPANY-BMS-2019-119613

PATIENT
  Age: 70 Year
  Sex: Female

DRUGS (1)
  1. ELIQUIS [Suspect]
     Active Substance: APIXABAN
     Indication: CEREBROVASCULAR ACCIDENT PROPHYLAXIS
     Dosage: UNK
     Route: 065

REACTIONS (13)
  - Hallucination [Unknown]
  - Bone pain [Unknown]
  - Arthralgia [Unknown]
  - Decreased appetite [Unknown]
  - Headache [Unknown]
  - Asthenia [Unknown]
  - Chest pain [Unknown]
  - Hypersensitivity [Unknown]
  - Feeling cold [Unknown]
  - Pain in extremity [Unknown]
  - Dizziness [Unknown]
  - Nausea [Unknown]
  - Hypoaesthesia [Unknown]
